FAERS Safety Report 24008268 (Version 1)
Quarter: 2024Q2

REPORT INFORMATION
  Report Type: Spontaneous
  Country: US (occurrence: US)
  Receive Date: 20240625
  Receipt Date: 20240625
  Transmission Date: 20240716
  Serious: No
  Sender: FDA-Public Use
  Company Number: US-ALMIRALL-US-2024-1430

PATIENT
  Sex: Female

DRUGS (1)
  1. KLISYRI [Suspect]
     Active Substance: TIRBANIBULIN
     Dates: start: 202402

REACTIONS (1)
  - Application site erythema [Unknown]

NARRATIVE: CASE EVENT DATE: 20240501
